FAERS Safety Report 10025322 (Version 1)
Quarter: 2014Q1

REPORT INFORMATION
  Report Type: Spontaneous
  Country: US (occurrence: None)
  Receive Date: 20140319
  Receipt Date: 20140319
  Transmission Date: 20141002
  Serious: Yes (Hospitalization)
  Sender: FDA-Public Use
  Company Number: None

PATIENT
  Age: 64 Year
  Sex: Male

DRUGS (1)
  1. HUMIRA PEN, 40 MG, ABBVIE [Suspect]
     Indication: PSORIASIS
     Route: 058
     Dates: start: 20120314, end: 20140207

REACTIONS (5)
  - Local swelling [None]
  - Thrombosis [None]
  - Factor XII deficiency [None]
  - Balance disorder [None]
  - Fall [None]
